FAERS Safety Report 9255483 (Version 1)
Quarter: 2013Q2

REPORT INFORMATION
  Report Type: Spontaneous
  Country: TR (occurrence: None)
  Receive Date: 20130418
  Receipt Date: 20130418
  Transmission Date: 20140414
  Serious: Yes (Death, Hospitalization)
  Sender: FDA-Public Use
  Company Number: UTC-031579

PATIENT
  Sex: Female

DRUGS (4)
  1. REMODULIN (INJECTION FOR INFUSION) (TREPROSTINIL SODIUM) [Suspect]
     Indication: PRODUCT USED FOR UNKNOWN INDICATION
     Dosage: .0008 M/H, SUBCUTANEOUS
     Route: 058
     Dates: start: 20121109
  2. BOSENTAN [Concomitant]
  3. LASIX (FUROSEMIDE) [Concomitant]
  4. DIGOXIN [Concomitant]

REACTIONS (3)
  - Cardiac arrest [None]
  - Cardiac failure [None]
  - Pain [None]
